FAERS Safety Report 25440325 (Version 1)
Quarter: 2025Q2

REPORT INFORMATION
  Report Type: Report from Study
  Country: TH (occurrence: TH)
  Receive Date: 20250616
  Receipt Date: 20250616
  Transmission Date: 20250717
  Serious: Yes (Life-Threatening, Hospitalization, Other)
  Sender: PFIZER
  Company Number: TH-PFIZER INC-PV202500070633

PATIENT
  Age: 10 Year
  Sex: Male

DRUGS (5)
  1. METHYLPREDNISOLONE SODIUM SUCCINATE [Suspect]
     Active Substance: METHYLPREDNISOLONE SODIUM SUCCINATE
     Indication: Pityriasis lichenoides et varioliformis acuta
     Dosage: 1.5 MG/KG, DAILY
     Route: 042
  2. METHYLPREDNISOLONE SODIUM SUCCINATE [Suspect]
     Active Substance: METHYLPREDNISOLONE SODIUM SUCCINATE
     Dosage: 2.3 MG/KG, DAILY
     Route: 042
  3. CLOXACILLIN [Suspect]
     Active Substance: CLOXACILLIN
     Indication: Pityriasis lichenoides et varioliformis acuta
  4. CEFTAZIDIME [Suspect]
     Active Substance: CEFTAZIDIME
     Indication: Pityriasis lichenoides et varioliformis acuta
  5. ERYTHROMYCIN [Suspect]
     Active Substance: ERYTHROMYCIN
     Indication: Pityriasis lichenoides et varioliformis acuta
     Route: 048

REACTIONS (1)
  - Drug ineffective [Unknown]
